FAERS Safety Report 7297010-6 (Version None)
Quarter: 2011Q1

REPORT INFORMATION
  Report Type: 
  Country: None (occurrence: None)
  Receive Date: 20110216
  Receipt Date: 20110210
  Transmission Date: 20110831
  Serious: Yes (Other)
  Sender: FDA-Public Use
  Company Number: CA-JNJFOC-20100900482

PATIENT
  Age: 57 Year
  Sex: Female

DRUGS (6)
  1. INDOMETHACIN [Concomitant]
  2. FOSAVANCE [Suspect]
     Indication: ILL-DEFINED DISORDER
  3. SYNTHROID [Concomitant]
  4. PLAQUENIL [Concomitant]
  5. REMICADE [Suspect]
     Indication: RHEUMATOID ARTHRITIS
     Route: 042
  6. PREDNISONE [Concomitant]

REACTIONS (3)
  - WEIGHT DECREASED [None]
  - DECREASED APPETITE [None]
  - CONSTIPATION [None]
